FAERS Safety Report 6556549-9 (Version None)
Quarter: 2010Q1

REPORT INFORMATION
  Report Type: 
  Country: None (occurrence: None)
  Receive Date: 20100125
  Receipt Date: 20100115
  Transmission Date: 20100710
  Serious: Yes (Death, Hospitalization)
  Sender: FDA-Public Use
  Company Number: CN-JNJFOC-20091107611

PATIENT
  Age: 47 Year
  Sex: Female
  Weight: 50 kg

DRUGS (1)
  1. DECITABINE (DECITABINE) LYOPHILIZED POWDER [Suspect]
     Indication: MYELODYSPLASTIC SYNDROME
     Dosage: 21 MG, 1 IN 8 HOUR, INTRAVENOUS
     Route: 042
     Dates: start: 20091120, end: 20091123

REACTIONS (5)
  - LEUKOPENIA [None]
  - LUNG INFECTION [None]
  - PULMONARY HAEMORRHAGE [None]
  - RESPIRATORY FAILURE [None]
  - RESPIRATORY RATE INCREASED [None]
